FAERS Safety Report 5471666-2 (Version None)
Quarter: 2007Q3

REPORT INFORMATION
  Report Type: 
  Country: None (occurrence: None)
  Receive Date: 20070928
  Receipt Date: 20070316
  Transmission Date: 20080115
  Serious: No
  Sender: FDA-Public Use
  Company Number: US-BRISTOL-MYERS SQUIBB COMPANY-13716923

PATIENT
  Age: 49 Year
  Sex: Female

DRUGS (6)
  1. DEFINITY [Suspect]
     Indication: STRESS ECHOCARDIOGRAM
     Dosage: 2CC-DILUTED BOLUS OF DEFINITY.
     Route: 040
  2. LOTREL [Concomitant]
  3. LIPITOR [Concomitant]
  4. NEXIUM [Concomitant]
  5. VITAMIN E [Concomitant]
  6. ST. JOSEPH ASPIRIN [Concomitant]

REACTIONS (2)
  - CHEST PAIN [None]
  - NECK PAIN [None]
